FAERS Safety Report 20222597 (Version 1)
Quarter: 2021Q4

REPORT INFORMATION
  Report Type: Spontaneous
  Country: US (occurrence: US)
  Receive Date: 20211223
  Receipt Date: 20211223
  Transmission Date: 20220304
  Serious: Yes (Other)
  Sender: FDA-Public Use
  Company Number: US-PFIZER INC-202101782593

PATIENT
  Age: 65 Year
  Sex: Female

DRUGS (1)
  1. IBRANCE [Suspect]
     Active Substance: PALBOCICLIB
     Dosage: 75 MG (1 DAILY FOR 14 DAYS EVERY 28 DAYS)

REACTIONS (3)
  - Neutropenia [Unknown]
  - Off label use [Unknown]
  - Product use issue [Unknown]
